FAERS Safety Report 18129078 (Version 1)
Quarter: 2020Q3

REPORT INFORMATION
  Report Type: Spontaneous
  Country: US (occurrence: US)
  Receive Date: 20200808
  Receipt Date: 20200808
  Transmission Date: 20201103
  Serious: Yes (Disabling)
  Sender: FDA-Public Use
  Company Number: None

PATIENT
  Age: 2 Year
  Sex: Male
  Weight: 10.8 kg

DRUGS (2)
  1. MIRALAX [Suspect]
     Active Substance: POLYETHYLENE GLYCOL 3350
     Indication: ANAL FISSURE
     Dates: start: 20200314, end: 20200718
  2. MIRALAX [Suspect]
     Active Substance: POLYETHYLENE GLYCOL 3350
     Indication: CONSTIPATION
     Dates: start: 20200314, end: 20200718

REACTIONS (5)
  - Anger [None]
  - Autism spectrum disorder [None]
  - Drug ineffective [None]
  - Adverse drug reaction [None]
  - Regressive behaviour [None]

NARRATIVE: CASE EVENT DATE: 20200718
